FAERS Safety Report 4599767-1 (Version None)
Quarter: 2005Q1

REPORT INFORMATION
  Report Type: 
  Country: None (occurrence: None)
  Receive Date: 20050303
  Receipt Date: 20050216
  Transmission Date: 20050727
  Serious: Yes (Hospitalization, Other)
  Sender: FDA-Public Use
  Company Number: USA-2003-0010580

PATIENT
  Age: 61 Year
  Sex: Female
  Weight: 90.7 kg

DRUGS (9)
  1. OXYCONTIN [Suspect]
     Dosage: SEE IMAGE
     Route: 048
  2. METOPROLOL TARTRATE [Concomitant]
  3. ELAVIL [Concomitant]
  4. PREDNISONE [Concomitant]
  5. ROXICODONE [Concomitant]
  6. PREMARIN [Concomitant]
  7. CALCIUM GLUCONATE [Concomitant]
  8. VITAMIN D [Concomitant]
  9. DULCOLAX [Concomitant]

REACTIONS (28)
  - ANXIETY [None]
  - CHEST PAIN [None]
  - DENTAL CARIES [None]
  - DIARRHOEA [None]
  - DIZZINESS [None]
  - DRUG ABUSER [None]
  - DRUG DEPENDENCE [None]
  - DRUG WITHDRAWAL SYNDROME [None]
  - DYSPEPSIA [None]
  - DYSPNOEA [None]
  - EMOTIONAL DISTRESS [None]
  - HEADACHE [None]
  - HOT FLUSH [None]
  - HYPERHIDROSIS [None]
  - HYPERTENSION [None]
  - HYPOAESTHESIA [None]
  - HYPOKALAEMIA [None]
  - INADEQUATE ANALGESIA [None]
  - LOSS OF CONSCIOUSNESS [None]
  - MUSCLE SPASMS [None]
  - NAUSEA [None]
  - PAIN [None]
  - PRURITUS [None]
  - PYREXIA [None]
  - SMALL INTESTINAL OBSTRUCTION [None]
  - TACHYCARDIA [None]
  - TOOTH LOSS [None]
  - VOMITING [None]
